FAERS Safety Report 14662786 (Version 1)
Quarter: 2020Q3

REPORT INFORMATION
  Report Type: Spontaneous
  Country: DK (occurrence: DK)
  Receive Date: 20180321
  Receipt Date: 20180321
  Transmission Date: 20201105
  Serious: Yes (Hospitalization)
  Sender: FDA-Public Use
  Company Number: DK-ROCHE-2088297

PATIENT
  Age: 69 Year
  Sex: Male
  Weight: 85 kg

DRUGS (1)
  1. IBANDRONIC ACID. [Suspect]
     Active Substance: IBANDRONIC ACID
     Indication: OSTEOPOROSIS
     Route: 048
     Dates: start: 2009

REACTIONS (5)
  - Diffuse large B-cell lymphoma [Unknown]
  - Pancreatic carcinoma [Unknown]
  - Rectal cancer [Unknown]
  - Cancer surgery [Unknown]
  - Hepatic cancer metastatic [Unknown]

NARRATIVE: CASE EVENT DATE: 2012
